FAERS Safety Report 10222297 (Version 1)
Quarter: 2014Q2

REPORT INFORMATION
  Report Type: Spontaneous
  Country: US (occurrence: US)
  Receive Date: 20140606
  Receipt Date: 20140606
  Transmission Date: 20141212
  Serious: No
  Sender: FDA-Public Use
  Company Number: US-ASTRAZENECA-2014SE36786

PATIENT
  Age: 66 Year
  Sex: Female
  Weight: 89.4 kg

DRUGS (11)
  1. SYMBICORT [Suspect]
     Indication: SINUSITIS
     Dosage: 160 MCG ONE PUFF TWO TIMES A DAY
     Route: 055
     Dates: start: 201403
  2. SYMBICORT [Suspect]
     Indication: ASTHMA
     Dosage: 160 MCG ONE PUFF TWO TIMES A DAY
     Route: 055
     Dates: start: 201403
  3. METOPROLOL SUCCINATE [Suspect]
     Indication: BLOOD PRESSURE ABNORMAL
     Route: 048
     Dates: start: 2012
  4. HYDROCHLORTHIAZIDE [Concomitant]
     Indication: DIURETIC THERAPY
  5. METFORMIN 500MG [Concomitant]
     Indication: DIABETES MELLITUS
  6. PREDNISONE 20MG [Concomitant]
     Indication: LOCAL SWELLING
  7. SINGULAIR 10 MG [Concomitant]
     Indication: MULTIPLE ALLERGIES
  8. GENERIC ASTELIN [Concomitant]
     Dosage: 1 SPRAY EACH NOSTRIL BID
     Route: 045
  9. FLUTICASONE [Concomitant]
     Dosage: 1 SPRAY EACH NOSTRIL BID
     Route: 045
  10. OMNARIS [Concomitant]
  11. ALVESCO [Concomitant]
     Indication: ASTHMA

REACTIONS (5)
  - Lymphadenopathy [Recovering/Resolving]
  - Local swelling [Recovering/Resolving]
  - Rotator cuff syndrome [Recovering/Resolving]
  - Hypersensitivity [Unknown]
  - Off label use [Unknown]
